FAERS Safety Report 5406043-3 (Version None)
Quarter: 2007Q3

REPORT INFORMATION
  Report Type: 
  Country: None (occurrence: None)
  Receive Date: 20070806
  Receipt Date: 20070731
  Transmission Date: 20080115
  Serious: Yes (Other)
  Sender: FDA-Public Use
  Company Number: A0668166A

PATIENT
  Age: 27 Year
  Sex: Female

DRUGS (3)
  1. TRIZIVIR [Suspect]
     Indication: HIV INFECTION
     Dosage: 1500MG PER DAY
     Route: 048
     Dates: start: 20070531, end: 20070622
  2. COMBIVIR [Suspect]
     Indication: HIV INFECTION
     Dosage: 900MG PER DAY
     Route: 048
     Dates: start: 20070622, end: 20070627
  3. NELFINAVIR [Concomitant]
     Indication: HIV INFECTION
     Dosage: 2600MG PER DAY
     Route: 048
     Dates: start: 20070622, end: 20070627

REACTIONS (6)
  - CERVICAL INCOMPETENCE [None]
  - CHLAMYDIAL INFECTION [None]
  - CHORIOAMNIONITIS [None]
  - DRUG EXPOSURE DURING PREGNANCY [None]
  - INTRA-UTERINE DEATH [None]
  - STILLBIRTH [None]
